FAERS Safety Report 6255066-3 (Version None)
Quarter: 2009Q3

REPORT INFORMATION
  Report Type: 
  Country: None (occurrence: None)
  Receive Date: 20090702
  Receipt Date: 20090622
  Transmission Date: 20100115
  Serious: Yes (Hospitalization, Other)
  Sender: FDA-Public Use
  Company Number: JP-PFIZER INC-2009233744

PATIENT
  Age: 58 Year

DRUGS (7)
  1. CABERGOLINE [Suspect]
     Indication: PITUITARY TUMOUR BENIGN
     Dosage: 0.5 MG, 1X/DAY
     Route: 048
     Dates: start: 20090612, end: 20090619
  2. MIDODRINE HYDROCHLORIDE [Suspect]
  3. CORTRIL [Concomitant]
  4. THYRADIN [Concomitant]
  5. VALERIN [Concomitant]
  6. DEPAKENE [Concomitant]
  7. ALEVIATIN [Concomitant]

REACTIONS (3)
  - DIZZINESS [None]
  - FALL [None]
  - SOMNOLENCE [None]
